FAERS Safety Report 24741406 (Version 3)
Quarter: 2025Q3

REPORT INFORMATION
  Report Type: Spontaneous
  Country: US (occurrence: US)
  Receive Date: 20241217
  Receipt Date: 20250728
  Transmission Date: 20251020
  Serious: Yes (Other)
  Sender: ALEXION PHARMACEUTICALS
  Company Number: US-AstraZeneca-CH-00764492AP

PATIENT
  Sex: Female

DRUGS (2)
  1. SYMBICORT [Suspect]
     Active Substance: BUDESONIDE\FORMOTEROL FUMARATE DIHYDRATE
     Indication: Dyspnoea
     Route: 065
  2. AIRSUPRA [Suspect]
     Active Substance: ALBUTEROL SULFATE\BUDESONIDE
     Route: 065

REACTIONS (9)
  - Abdominal pain [Unknown]
  - Retching [Unknown]
  - Nail disorder [Unknown]
  - Product use issue [Unknown]
  - Eye haemorrhage [Unknown]
  - Dry eye [Unknown]
  - Obstructive airways disorder [Unknown]
  - Panic reaction [Unknown]
  - Device malfunction [Unknown]
